FAERS Safety Report 6385581-3 (Version None)
Quarter: 2009Q3

REPORT INFORMATION
  Report Type: 
  Country: None (occurrence: None)
  Receive Date: 20090929
  Receipt Date: 20090313
  Transmission Date: 20100115
  Serious: Yes (Life-Threatening, Hospitalization)
  Sender: FDA-Public Use
  Company Number: LMI-2009-00046

PATIENT
  Age: 38 Year
  Sex: Female
  Weight: 82.1011 kg

DRUGS (22)
  1. DEFINITY [Suspect]
     Indication: CARDIAC FAILURE CONGESTIVE
     Dosage: 1.3 ML DILUTED TO 10 ML (5 ML), INTRAVENOUS
     Route: 042
     Dates: start: 20090219, end: 20090219
  2. DEFINITY [Suspect]
     Indication: DIABETES MELLITUS
     Dosage: 1.3 ML DILUTED TO 10 ML (5 ML), INTRAVENOUS
     Route: 042
     Dates: start: 20090219, end: 20090219
  3. DEFINITY [Suspect]
     Indication: ECHOCARDIOGRAM
     Dosage: 1.3 ML DILUTED TO 10 ML (5 ML), INTRAVENOUS
     Route: 042
     Dates: start: 20090219, end: 20090219
  4. DEFINITY [Suspect]
     Indication: OBESITY
     Dosage: 1.3 ML DILUTED TO 10 ML (5 ML), INTRAVENOUS
     Route: 042
     Dates: start: 20090219, end: 20090219
  5. DEFINITY [Suspect]
     Indication: RENAL FAILURE
     Dosage: 1.3 ML DILUTED TO 10 ML (5 ML), INTRAVENOUS
     Route: 042
     Dates: start: 20090219, end: 20090219
  6. MULTIVITAMIN (ERGOCALCIFEROL, ASCORBIC ACID, PYRIDOXINE HYDROCHLORIDE, [Concomitant]
  7. NORVASC [Concomitant]
  8. BENICAR [Concomitant]
  9. SIMVASTATIN [Concomitant]
  10. LITHIUM CARBONATE [Concomitant]
  11. CELEXA [Concomitant]
  12. IRON (IRON) [Concomitant]
  13. CORAG CR (CARVEDILOL) [Concomitant]
  14. LASIX [Concomitant]
  15. DOXAZOSIN MESYLATE [Concomitant]
  16. VITAMIN D [Concomitant]
  17. LANTUS [Concomitant]
  18. HUMALOG [Concomitant]
  19. ATIVAN [Concomitant]
  20. PRILOSEC [Concomitant]
  21. SYMLIN [Concomitant]
  22. MAXEPA (GLUCOSE, CITRIC ACID, TRIACETIN, SODIUM BICARBONATE, POTASSIUM [Concomitant]

REACTIONS (2)
  - CARDIAC ARREST [None]
  - SINUS BRADYCARDIA [None]
